FAERS Safety Report 15307235 (Version 9)
Quarter: 2022Q2

REPORT INFORMATION
  Report Type: Spontaneous
  Country: US (occurrence: US)
  Receive Date: 20180822
  Receipt Date: 20220510
  Transmission Date: 20220720
  Serious: Yes (Hospitalization, Other)
  Sender: FDA-Public Use
  Company Number: US-GLAXOSMITHKLINE-US2018GSK152001

PATIENT
  Sex: Male
  Weight: 88.435 kg

DRUGS (7)
  1. PREVACID 24 HR [Suspect]
     Active Substance: LANSOPRAZOLE
     Indication: Dyspepsia
     Dosage: UNK
     Route: 048
  2. PANTOPRAZOLE [Suspect]
     Active Substance: PANTOPRAZOLE
     Indication: Gastrooesophageal reflux disease
     Dosage: 40 MG, BID
     Route: 065
     Dates: start: 201203, end: 201307
  3. PANTOPRAZOLE [Suspect]
     Active Substance: PANTOPRAZOLE
     Dosage: 20 MG, QD
     Route: 048
     Dates: start: 201310, end: 201406
  4. PANTOPRAZOLE [Suspect]
     Active Substance: PANTOPRAZOLE
     Indication: Product used for unknown indication
     Dosage: 20 MG, QD
     Route: 048
     Dates: start: 20170424, end: 20190429
  5. PANTOPRAZOLE [Suspect]
     Active Substance: PANTOPRAZOLE
     Dosage: 40 MG, BID
     Route: 048
  6. PANTOPRAZOLE SODIUM [Suspect]
     Active Substance: PANTOPRAZOLE SODIUM
     Indication: Product used for unknown indication
     Dosage: 20 MG, QD
     Route: 048
  7. ESOMEPRAZOLE MAGNESIUM [Suspect]
     Active Substance: ESOMEPRAZOLE MAGNESIUM
     Indication: Product used for unknown indication
     Dosage: 40 MG, UNK
     Route: 048
     Dates: start: 20080116, end: 20111125

REACTIONS (15)
  - Renal failure [Unknown]
  - Chronic kidney disease [Unknown]
  - Acute kidney injury [Unknown]
  - Kidney infection [Unknown]
  - Hypertensive nephropathy [Unknown]
  - Nephropathy [Unknown]
  - Haematuria [Unknown]
  - Nocturia [Unknown]
  - Urine flow decreased [Unknown]
  - Proteinuria [Unknown]
  - Micturition urgency [Unknown]
  - Dysuria [Unknown]
  - Pollakiuria [Unknown]
  - Microalbuminuria [Unknown]
  - Glomerular filtration rate decreased [Unknown]
